FAERS Safety Report 7684669-4 (Version None)
Quarter: 2011Q3

REPORT INFORMATION
  Report Type: 
  Country: None (occurrence: None)
  Receive Date: 20110805
  Receipt Date: 20110802
  Transmission Date: 20111222
  Serious: Yes (Other)
  Sender: FDA-Public Use
  Company Number: 2011028772

PATIENT
  Age: 81 Year
  Sex: Female
  Weight: 79.3795 kg

DRUGS (11)
  1. ALBUTEROL [Concomitant]
  2. HIZENTRA [Suspect]
     Indication: IMMUNODEFICIENCY COMMON VARIABLE
     Dosage: 12 G 1X/WEEK, 60 ML IN 3-4 SITES OVER 2 HOURS ,4 GM 20 ML VIAL  SUBCUTANEOUS
     Route: 058
     Dates: start: 20110323
  3. TRAZODONE HCL [Concomitant]
  4. CARAFATE [Concomitant]
  5. DIOVAN [Concomitant]
  6. LOPERAMIDE [Concomitant]
  7. ADVAIR HFA [Concomitant]
  8. SINGULAIR [Concomitant]
  9. OXYBUTRIN (OXYBUTYNIN) [Concomitant]
  10. HIZENTRA [Suspect]
  11. BISOPROLOL FUMARATE [Concomitant]

REACTIONS (1)
  - UPPER RESPIRATORY TRACT INFECTION [None]
